FAERS Safety Report 10221735 (Version 1)
Quarter: 2014Q2

REPORT INFORMATION
  Report Type: Spontaneous
  Country: US (occurrence: None)
  Receive Date: 20140606
  Receipt Date: 20140606
  Transmission Date: 20141212
  Serious: Yes (Disabling)
  Sender: FDA-Public Use
  Company Number: None

PATIENT
  Age: 36 Year
  Sex: Female
  Weight: 67.13 kg

DRUGS (1)
  1. NEXPLANON [Suspect]
     Indication: CONTRACEPTION
     Dosage: 1 EVERY 3 YEARS IMPLANTED IN ARM
     Dates: start: 20131001, end: 20140605

REACTIONS (3)
  - Menorrhagia [None]
  - Affective disorder [None]
  - Mood swings [None]
